FAERS Safety Report 25941941 (Version 1)
Quarter: 2025Q4

REPORT INFORMATION
  Report Type: Report from Study
  Country: CO (occurrence: CO)
  Receive Date: 20251020
  Receipt Date: 20251020
  Transmission Date: 20260118
  Serious: Yes (Hospitalization)
  Sender: ASTELLAS
  Company Number: CA-ASTELLAS-2025-AER-056813

PATIENT
  Age: 63 Year
  Sex: Female

DRUGS (1)
  1. ENFORTUMAB VEDOTIN [Suspect]
     Active Substance: ENFORTUMAB VEDOTIN
     Indication: Transitional cell carcinoma metastatic
     Dosage: UNK?POWDER FOR SOLUTION FOR INJECTION
     Route: 042
     Dates: start: 20250802

REACTIONS (1)
  - Wound dehiscence [Not Recovered/Not Resolved]

NARRATIVE: CASE EVENT DATE: 20251007
